FAERS Safety Report 10339490 (Version 3)
Quarter: 2014Q3

REPORT INFORMATION
  Report Type: Spontaneous
  Country: DE (occurrence: DE)
  Receive Date: 20140724
  Receipt Date: 20140903
  Transmission Date: 20150326
  Serious: Yes (Other)
  Sender: FDA-Public Use
  Company Number: DE-SA-2014SA096103

PATIENT
  Sex: Male

DRUGS (1)
  1. CLEXANE [Suspect]
     Active Substance: ENOXAPARIN SODIUM
     Indication: POSTOPERATIVE CARE
     Route: 058

REACTIONS (3)
  - Cerebral artery embolism [Recovered/Resolved]
  - Cerebral artery occlusion [Unknown]
  - Eye disorder [Recovered/Resolved]
